FAERS Safety Report 23556035 (Version 1)
Quarter: 2024Q1

REPORT INFORMATION
  Report Type: Spontaneous
  Country: CN (occurrence: CN)
  Receive Date: 20240222
  Receipt Date: 20240222
  Transmission Date: 20240410
  Serious: Yes (Hospitalization, Other)
  Sender: FDA-Public Use
  Company Number: CN-SHANGHAI JUNSHI BIOSCIENCES CO., LTD.-CN2024009351

PATIENT

DRUGS (6)
  1. TORIPALIMAB [Suspect]
     Active Substance: TORIPALIMAB
     Indication: Malignant neoplasm of renal pelvis
     Dosage: 240 MG (D1), ONCE EVERY 21 DAYS
     Route: 041
     Dates: start: 20240108, end: 20240108
  2. DISITAMAB VEDOTIN [Suspect]
     Active Substance: DISITAMAB VEDOTIN
     Indication: Malignant neoplasm of renal pelvis
     Dosage: 120 MG (D1), ONCE EVERY 21 DAYS
     Route: 041
     Dates: start: 20240108, end: 20240108
  3. PACLITAXEL [Suspect]
     Active Substance: PACLITAXEL
     Indication: Malignant neoplasm of renal pelvis
     Dosage: 200 MG (D1, D8), 21 DAYS AS ONE CYCLE
     Route: 041
     Dates: start: 20240109, end: 20240109
  4. SODIUM CHLORIDE [Concomitant]
     Active Substance: SODIUM CHLORIDE
     Indication: Medication dilution
     Dosage: 250 ML (D1), EVERY 21 DAYS
     Route: 041
     Dates: start: 20240108, end: 20240108
  5. SODIUM CHLORIDE [Concomitant]
     Active Substance: SODIUM CHLORIDE
     Indication: Medication dilution
     Dosage: 100 ML (D1), EVERY 21 DAYS
     Route: 041
     Dates: start: 20240108, end: 20240108
  6. SODIUM CHLORIDE [Concomitant]
     Active Substance: SODIUM CHLORIDE
     Indication: Medication dilution
     Dosage: 250 ML (D1,D8), 21 DAYS AS ONE CYCLE
     Route: 041
     Dates: start: 20240109, end: 20240109

REACTIONS (2)
  - Myelosuppression [Recovering/Resolving]
  - Off label use [Unknown]

NARRATIVE: CASE EVENT DATE: 20240108
